FAERS Safety Report 7985871-4 (Version None)
Quarter: 2011Q4

REPORT INFORMATION
  Report Type: 
  Country: None (occurrence: None)
  Receive Date: 20111214
  Receipt Date: 20111206
  Transmission Date: 20120403
  Serious: Yes (Hospitalization)
  Sender: FDA-Public Use
  Company Number: ACO_27606_2011

PATIENT
  Age: 48 Year
  Sex: Female

DRUGS (3)
  1. AMPYRA [Suspect]
     Indication: GAIT DISTURBANCE
     Dosage: 10 MG, Q 12 HRS, ORAL 10 MG, QD, ORAL 10 MG, Q 12 HRS
     Route: 048
     Dates: start: 20100801
  2. AMPYRA [Suspect]
     Indication: GAIT DISTURBANCE
     Dosage: 10 MG, Q 12 HRS, ORAL 10 MG, QD, ORAL 10 MG, Q 12 HRS
     Route: 048
     Dates: start: 20111001
  3. AMPYRA [Suspect]
     Indication: GAIT DISTURBANCE
     Dosage: 10 MG, Q 12 HRS, ORAL 10 MG, QD, ORAL 10 MG, Q 12 HRS
     Route: 048
     Dates: end: 20111001

REACTIONS (2)
  - RENAL PAIN [None]
  - INAPPROPRIATE SCHEDULE OF DRUG ADMINISTRATION [None]
